FAERS Safety Report 8980306 (Version 2)
Quarter: 2013Q3

REPORT INFORMATION
  Report Type: Report from Study
  Country: HU (occurrence: HU)
  Receive Date: 20121221
  Receipt Date: 20130902
  Transmission Date: 20140515
  Serious: Yes (Death, Hospitalization)
  Sender: FDA-Public Use
  Company Number: HU-ROCHE-1167483

PATIENT
  Age: 76 Year
  Sex: Male
  Weight: 85 kg

DRUGS (3)
  1. TOCILIZUMAB [Suspect]
     Indication: RHEUMATOID ARTHRITIS
     Route: 042
     Dates: start: 20120906, end: 20121112
  2. ETORICOXIB [Concomitant]
     Indication: RHEUMATOID ARTHRITIS
     Route: 048
     Dates: start: 20120622, end: 20121203
  3. METHYL PREDNISOLONE SODIUM SUCCINATE [Concomitant]
     Indication: RHEUMATOID ARTHRITIS
     Route: 048
     Dates: start: 200806, end: 20121203

REACTIONS (2)
  - Leukocytosis [Fatal]
  - Acute myeloid leukaemia [Fatal]
